FAERS Safety Report 4899362-0 (Version None)
Quarter: 2006Q1

REPORT INFORMATION
  Report Type: 
  Country: None (occurrence: None)
  Receive Date: 20060131
  Receipt Date: 20060118
  Transmission Date: 20060701
  Serious: Yes (Other)
  Sender: FDA-Public Use
  Company Number: 2006011926

PATIENT
  Age: 25 Year
  Sex: Female

DRUGS (1)
  1. SULFASALAZINE [Suspect]
     Indication: COLITIS ULCERATIVE
     Dosage: 4 GRAM (1D), ORAL
     Route: 048

REACTIONS (3)
  - NON-CARDIOGENIC PULMONARY OEDEMA [None]
  - PNEUMONIA BACTERIAL [None]
  - SHIFT TO THE LEFT [None]
